FAERS Safety Report 6539830-9 (Version None)
Quarter: 2010Q1

REPORT INFORMATION
  Report Type: 
  Country: None (occurrence: None)
  Receive Date: 20100115
  Receipt Date: 20100107
  Transmission Date: 20100710
  Serious: Yes (Hospitalization)
  Sender: FDA-Public Use
  Company Number: FR-ABBOTT-09P-056-0599950-00

PATIENT
  Age: 23 Year
  Sex: Female
  Weight: 70 kg

DRUGS (2)
  1. HUMIRA [Suspect]
     Indication: CROHN'S DISEASE
     Route: 058
     Dates: start: 20090324, end: 20090519
  2. HUMIRA [Suspect]
     Dates: start: 20090818

REACTIONS (1)
  - RENAL FAILURE ACUTE [None]
